FAERS Safety Report 5768054-8 (Version None)
Quarter: 2008Q2

REPORT INFORMATION
  Report Type: 
  Country: None (occurrence: None)
  Receive Date: 20080612
  Receipt Date: 20070726
  Transmission Date: 20081010
  Serious: No
  Sender: FDA-Public Use
  Company Number: US-ASTRAZENECA-2007UW18137

PATIENT
  Sex: Female

DRUGS (4)
  1. FASLODEX [Suspect]
     Indication: BREAST CANCER METASTATIC
     Route: 030
     Dates: start: 20070701
  2. FASLODEX [Suspect]
     Route: 030
  3. FEMARA [Concomitant]
  4. AROMASIN [Concomitant]

REACTIONS (3)
  - BREATH ODOUR [None]
  - DYSGEUSIA [None]
  - URINE ODOUR ABNORMAL [None]
